FAERS Safety Report 18197384 (Version 1)
Quarter: 2020Q3

REPORT INFORMATION
  Report Type: Spontaneous
  Country: US (occurrence: US)
  Receive Date: 20200826
  Receipt Date: 20200826
  Transmission Date: 20201103
  Serious: Yes (Hospitalization)
  Sender: FDA-Public Use
  Company Number: None

PATIENT
  Age: 65 Year
  Sex: Female

DRUGS (2)
  1. REVLIMID [Concomitant]
     Active Substance: LENALIDOMIDE
  2. FORTEO [Suspect]
     Active Substance: TERIPARATIDE
     Indication: SENILE OSTEOPOROSIS
     Route: 058
     Dates: start: 20190307

REACTIONS (2)
  - Short-bowel syndrome [None]
  - Therapy interrupted [None]

NARRATIVE: CASE EVENT DATE: 202007
